FAERS Safety Report 20540401 (Version 1)
Quarter: 2022Q1

REPORT INFORMATION
  Report Type: Spontaneous
  Country: CA (occurrence: CA)
  Receive Date: 20220302
  Receipt Date: 20220302
  Transmission Date: 20220423
  Serious: Yes (Other)
  Sender: FDA-Public Use
  Company Number: CA-JNJFOC-20211143592

PATIENT
  Age: 24 Year
  Sex: Male
  Weight: 94 kg

DRUGS (6)
  1. REMICADE [Suspect]
     Active Substance: INFLIXIMAB
     Indication: Crohn^s disease
     Route: 042
  2. ACETAMINOPHEN [Concomitant]
     Active Substance: ACETAMINOPHEN
  3. AMOXICILLIN\CLAVULANATE POTASSIUM [Concomitant]
     Active Substance: AMOXICILLIN\CLAVULANATE POTASSIUM
     Indication: Anal abscess
  4. DIPHENHYDRAMINE [Concomitant]
     Active Substance: DIPHENHYDRAMINE
  5. HYDROCORTISONE [Concomitant]
     Active Substance: HYDROCORTISONE
  6. HYDROMORPHONE [Concomitant]
     Active Substance: HYDROMORPHONE

REACTIONS (12)
  - Tremor [Not Recovered/Not Resolved]
  - Heart rate increased [Not Recovered/Not Resolved]
  - Fistula [Not Recovered/Not Resolved]
  - Anal fissure [Not Recovered/Not Resolved]
  - Anal abscess [Not Recovered/Not Resolved]
  - Blood pressure increased [Not Recovered/Not Resolved]
  - Condition aggravated [Not Recovered/Not Resolved]
  - Abscess [Not Recovered/Not Resolved]
  - Feeling cold [Not Recovered/Not Resolved]
  - Arthralgia [Not Recovered/Not Resolved]
  - Chills [Not Recovered/Not Resolved]
  - Pruritus [Not Recovered/Not Resolved]
